FAERS Safety Report 4416518-1 (Version None)
Quarter: 2004Q3

REPORT INFORMATION
  Report Type: 
  Country: None (occurrence: None)
  Receive Date: 20040802
  Receipt Date: 20040722
  Transmission Date: 20050211
  Serious: No
  Sender: FDA-Public Use
  Company Number: 04P-167-0264124-00

PATIENT
  Age: 66 Year
  Sex: Female

DRUGS (19)
  1. DEPAKOTE [Suspect]
     Indication: MOOD SWINGS
     Dosage: 750 MG, ONCE, PER ORAL
     Route: 048
     Dates: start: 20040510, end: 20040510
  2. NITROGLYCERIN [Concomitant]
  3. CARBOMER [Concomitant]
  4. LORATADINE [Concomitant]
  5. RAMIPRIL [Concomitant]
  6. GAVISCON [Concomitant]
  7. ISOSORBIDE MONONITRATE [Concomitant]
  8. ASPIRIN [Concomitant]
  9. PSEUDOEPHEDRINE HCL [Concomitant]
  10. FUROSEMIDE [Concomitant]
  11. ESTRADIOL [Concomitant]
  12. ACETAMINOPHEN AND CODEINE PHOSPHATE [Concomitant]
  13. SERTRALINE HCL [Concomitant]
  14. FLUTICASONE PROPIONATE [Concomitant]
  15. TEMAZEPAM [Concomitant]
  16. TERBUTALINE [Concomitant]
  17. OILATUM [Concomitant]
  18. ROSUVASTATIN [Concomitant]
  19. DILTIAZEM [Concomitant]

REACTIONS (4)
  - AGGRESSION [None]
  - ANXIETY [None]
  - RETINAL HAEMORRHAGE [None]
  - TENSION [None]
